FAERS Safety Report 5474389-9 (Version None)
Quarter: 2007Q3

REPORT INFORMATION
  Report Type: 
  Country: None (occurrence: None)
  Receive Date: 20070904
  Receipt Date: 20070220
  Transmission Date: 20080115
  Serious: Yes (Death)
  Sender: FDA-Public Use
  Company Number: T200700237

PATIENT
  Sex: Male

DRUGS (2)
  1. MORPHINE [Suspect]
     Indication: PAIN
  2. CITALOPRAM (CITALOPRAM) [Concomitant]

REACTIONS (1)
  - OVERDOSE [None]
